FAERS Safety Report 26167990 (Version 1)
Quarter: 2025Q4

REPORT INFORMATION
  Report Type: Spontaneous
  Country: CA (occurrence: CA)
  Receive Date: 20251217
  Receipt Date: 20251217
  Transmission Date: 20260118
  Serious: Yes (Other)
  Sender: TEVA
  Company Number: CA-TEVA-VS-3402403

PATIENT

DRUGS (1)
  1. BUPROPION [Suspect]
     Active Substance: BUPROPION
     Indication: Product used for unknown indication
     Dosage: BUPROPION XL
     Route: 048
     Dates: start: 2021

REACTIONS (8)
  - Post-acute COVID-19 syndrome [Unknown]
  - Dizziness [Unknown]
  - Feeling abnormal [Unknown]
  - Dizziness [Unknown]
  - Anxiety [Unknown]
  - Drug hypersensitivity [Unknown]
  - Product quality issue [Unknown]
  - Energy increased [Unknown]
